FAERS Safety Report 10155117 (Version 1)
Quarter: 2014Q2

REPORT INFORMATION
  Report Type: Spontaneous
  Country: US (occurrence: US)
  Receive Date: 20140506
  Receipt Date: 20140506
  Transmission Date: 20141212
  Serious: Yes (Hospitalization)
  Sender: FDA-Public Use
  Company Number: US-SA-2014SA056727

PATIENT
  Age: 75 Year
  Sex: Female
  Weight: 57 kg

DRUGS (16)
  1. LASIX [Suspect]
     Indication: PRODUCT USED FOR UNKNOWN INDICATION
     Dosage: STRENGTH: 40 MG
     Route: 065
  2. HEPARIN [Concomitant]
     Dosage: STRENGTH: 100 UNITS/ML
  3. NORMAL SALINE [Concomitant]
  4. SODIUM CHLORIDE [Concomitant]
     Dosage: STRENGTH: 0.9 %
  5. WATER [Concomitant]
  6. EPINEPHRINE [Concomitant]
  7. PANTOPRAZOLE SODIUM [Concomitant]
     Dosage: STRENGTH: 40 MG
  8. METOPROLOL TARTRATE [Concomitant]
     Dosage: STRENGTH: 25 MG
  9. WARFARIN SODIUM [Concomitant]
     Dosage: STRENGTH: 2 MG
  10. VITAMIN D [Concomitant]
     Dosage: STRENGTH: 1000 U
  11. ANTACIDS [Concomitant]
     Dosage: STRENGTH: 750 MG
  12. LIPITOR [Concomitant]
     Dosage: STRENGTH: 10 MG
  13. LEVOTHROID [Concomitant]
     Dosage: STRENGTH: 100 MCG
  14. ERGOCALCIFEROL [Concomitant]
  15. FISH OIL [Concomitant]
     Dosage: CONCENTRATE
  16. ACETYLSALICYLIC ACID [Concomitant]
     Dosage: STRENGTH: 81 MG

REACTIONS (1)
  - Hospitalisation [Unknown]
